FAERS Safety Report 12503728 (Version 2)
Quarter: 2017Q3

REPORT INFORMATION
  Report Type: Spontaneous
  Country: NL (occurrence: NL)
  Receive Date: 20160628
  Receipt Date: 20170810
  Transmission Date: 20171127
  Serious: Yes (Other)
  Sender: FDA-Public Use
  Company Number: NL-SUN PHARMACEUTICAL INDUSTRIES LTD-2016R1-118857

PATIENT
  Age: 75 Year
  Sex: Female

DRUGS (7)
  1. IMATINIB [Suspect]
     Active Substance: IMATINIB
     Indication: GASTROINTESTINAL STROMAL TUMOUR
     Dosage: 400 MG, QD
     Route: 065
  2. PREDNISOLONE. [Suspect]
     Active Substance: PREDNISOLONE
     Indication: PROPHYLAXIS
  3. CLEMASTINE [Suspect]
     Active Substance: CLEMASTINE
     Indication: SKIN TOXICITY
     Dosage: 1 MG, BID
     Route: 065
  4. IMATINIB [Suspect]
     Active Substance: IMATINIB
     Dosage: 300 MG, QD
     Route: 065
  5. IMATINIB [Suspect]
     Active Substance: IMATINIB
     Dosage: 200 MG, QD
     Route: 065
  6. PREDNISOLONE. [Suspect]
     Active Substance: PREDNISOLONE
     Indication: SKIN TOXICITY
     Dosage: 30 MG, DAILY
  7. CLEMASTINE [Suspect]
     Active Substance: CLEMASTINE
     Indication: PROPHYLAXIS

REACTIONS (2)
  - Drug ineffective [Unknown]
  - Skin toxicity [Recovered/Resolved]
